FAERS Safety Report 12654498 (Version 1)
Quarter: 2016Q3

REPORT INFORMATION
  Report Type: Spontaneous
  Country: US (occurrence: None)
  Receive Date: 20160815
  Receipt Date: 20160815
  Transmission Date: 20161109
  Serious: Yes (Life-Threatening, Hospitalization, Disabling)
  Sender: FDA-Public Use
  Company Number: None

PATIENT
  Age: 34 Year
  Sex: Female
  Weight: 72 kg

DRUGS (5)
  1. FLAGYL [Suspect]
     Active Substance: METRONIDAZOLE\METRONIDAZOLE HYDROCHLORIDE
     Indication: ENDOMETRITIS
     Dosage: 1 TABLET EVERY 12 HOURS FIRST THREE DOSES ORAL THEN 1 IV DOSE
     Dates: start: 20160811, end: 20160813
  2. KETITOFEN [Concomitant]
  3. FOLIC ACID. [Concomitant]
     Active Substance: FOLIC ACID
  4. INHALER FOR ASTHMA [Concomitant]
     Active Substance: UNSPECIFIED INGREDIENT
  5. PRENATAL VITAMINS [Concomitant]
     Active Substance: VITAMINS

REACTIONS (5)
  - Confusional state [None]
  - Aphasia [None]
  - Choking [None]
  - Retching [None]
  - Cerebrovascular accident [None]

NARRATIVE: CASE EVENT DATE: 20160812
